FAERS Safety Report 22348909 (Version 1)
Quarter: 2023Q2

REPORT INFORMATION
  Report Type: Report from Study
  Country: US (occurrence: US)
  Receive Date: 20230522
  Receipt Date: 20230522
  Transmission Date: 20230722
  Serious: Yes (Death, Life-Threatening, Hospitalization)
  Sender: FDA-Public Use
  Company Number: US-EXELIXIS-CABO-23062589

PATIENT
  Age: 61 Year
  Sex: Male

DRUGS (33)
  1. CABOMETYX [Suspect]
     Active Substance: CABOZANTINIB S-MALATE
     Indication: Metastatic renal cell carcinoma
     Dosage: 40 MG, QD
     Route: 048
     Dates: start: 20230124, end: 20230214
  2. CABOMETYX [Suspect]
     Active Substance: CABOZANTINIB S-MALATE
     Indication: Adrenocortical carcinoma
     Dosage: 40 MG, QD
     Route: 048
     Dates: start: 20230311, end: 20230401
  3. TUMS [Concomitant]
     Active Substance: CALCIUM CARBONATE
  4. MEN [Concomitant]
  5. PEPCID [Concomitant]
     Active Substance: FAMOTIDINE
     Indication: Dyspepsia
  6. BIOTIN [Concomitant]
     Active Substance: BIOTIN
  7. FLOMAX [Concomitant]
     Active Substance: TAMSULOSIN HYDROCHLORIDE
  8. HYDROCORTISONE [Concomitant]
     Active Substance: HYDROCORTISONE
     Indication: Rash
  9. MONTELUKAST [Concomitant]
     Active Substance: MONTELUKAST SODIUM
  10. DIALYVITE [Concomitant]
     Active Substance: ASCORBIC ACID\BIOTIN\CALCIUM PANTOTHENATE\COBALAMIN\FOLIC ACID\NIACINAMIDE\PYRIDOXINE HYDROCHLORIDE\
  11. AMLODIPINE [Concomitant]
     Active Substance: AMLODIPINE BESYLATE
  12. LORAZEPAM [Concomitant]
     Active Substance: LORAZEPAM
  13. ALBUTEROL [Concomitant]
     Active Substance: ALBUTEROL
     Indication: Wheezing
  14. NORVASC [Concomitant]
     Active Substance: AMLODIPINE BESYLATE
  15. COREG [Concomitant]
     Active Substance: CARVEDILOL
  16. CLEOCIN-T [Concomitant]
  17. FLONASE [Concomitant]
     Active Substance: FLUTICASONE PROPIONATE
  18. ANUSOL HC [Concomitant]
     Active Substance: HYDROCORTISONE
  19. CORTEF [Concomitant]
     Active Substance: HYDROCORTISONE
     Indication: Adrenal insufficiency
  20. ATROVENT [Concomitant]
     Active Substance: IPRATROPIUM BROMIDE
  21. ATIVAN [Concomitant]
     Active Substance: LORAZEPAM
     Indication: Anxiety
  22. LYSODREN [Concomitant]
     Active Substance: MITOTANE
  23. SINGULAIR [Concomitant]
     Active Substance: MONTELUKAST SODIUM
  24. MUCOSITIS MOUTHWASH [Concomitant]
  25. MV-MINS/FOLIC/LYCOPENE/GINKGO [Concomitant]
  26. ZOFRAN [Concomitant]
     Active Substance: ONDANSETRON HYDROCHLORIDE
     Indication: Nausea
  27. DELTASONE [Concomitant]
     Active Substance: PREDNISONE
  28. COMPAZINE [Concomitant]
     Active Substance: PROCHLORPERAZINE MALEATE
     Indication: Nausea
  29. ULTRAM [Concomitant]
     Active Substance: TRAMADOL HYDROCHLORIDE
     Indication: Pain
  30. DESYREL [Concomitant]
     Active Substance: TRAZODONE HYDROCHLORIDE
     Indication: Insomnia
  31. VITAMIN D2 [Concomitant]
     Active Substance: ERGOCALCIFEROL
  32. HERBALS [Concomitant]
     Active Substance: HERBALS
  33. TRAZODONE [Concomitant]
     Active Substance: TRAZODONE HYDROCHLORIDE

REACTIONS (22)
  - Cholelithiasis [Unknown]
  - Acute kidney injury [Fatal]
  - Blood pressure decreased [Unknown]
  - Hepatitis cholestatic [Fatal]
  - Asthenia [Unknown]
  - Sepsis [Unknown]
  - Shock [Unknown]
  - Metabolic acidosis [Unknown]
  - Cholecystitis acute [Unknown]
  - Mental status changes [Unknown]
  - Ventricular tachycardia [Unknown]
  - Haemorrhoidal haemorrhage [Unknown]
  - Haemorrhage [Unknown]
  - Sleep disorder [Unknown]
  - Myalgia [Unknown]
  - Dehydration [Unknown]
  - Decreased appetite [Unknown]
  - Nausea [Recovered/Resolved]
  - Vomiting [Recovered/Resolved]
  - Constipation [Unknown]
  - Fatigue [Unknown]
  - Dizziness [Unknown]

NARRATIVE: CASE EVENT DATE: 20230130
